FAERS Safety Report 8507870-6 (Version None)
Quarter: 2012Q3

REPORT INFORMATION
  Report Type: 
  Country: None (occurrence: None)
  Receive Date: 20120713
  Receipt Date: 20120705
  Transmission Date: 20120928
  Serious: Yes (Hospitalization, Other)
  Sender: FDA-Public Use
  Company Number: PHHY2011BR29115

PATIENT
  Sex: Female
  Weight: 65 kg

DRUGS (15)
  1. TRISORB [Concomitant]
     Indication: CATARACT
  2. OMEPRAZOLE [Concomitant]
     Indication: GASTRITIS
     Dosage: 1 DF, (AT FASTING) QD
     Route: 048
  3. LIPOSIC [Concomitant]
     Indication: GLAUCOMA
     Dosage: 1 DROP IN EACH EYE DAILY
  4. LIPOSIC [Concomitant]
     Indication: CATARACT
  5. AMLODIPINE [Concomitant]
     Indication: HYPERTENSION
     Dosage: 1 DF, BID
     Route: 048
  6. ZODEN [Suspect]
     Dosage: 400 MG, UNK
  7. ASPIRIN [Concomitant]
     Dosage: 1 DF, QD
     Route: 048
  8. HYDERGINE [Suspect]
     Indication: OXYGEN SUPPLEMENTATION
     Dosage: 6 MG, AT NIGHT
     Dates: start: 20101110
  9. METFORMIN HYDROCHLORIDE [Concomitant]
     Indication: DIABETES MELLITUS
     Dosage: 1 TABLET (500 MG) TWO TIMES DAILY, AFTER THE LUNCH AND DINNER
     Route: 048
  10. DIOVAN [Suspect]
     Indication: HYPERTENSION
     Dosage: 1 TABLET (160 MG) IN THE MORNING AND 1 TABLET (160 MG) AT NIGHT
     Dates: start: 20050101
  11. TRISORB [Concomitant]
     Indication: GLAUCOMA
     Dosage: 1 DROP IN EACH EYE, UNK
  12. ENALAPRIL MALEATE [Concomitant]
     Indication: HYPERTENSION
     Dosage: 1 DF(AFTER A LUNCH AND AT NIGHT), BID
     Route: 048
  13. SIMVASTATIN [Concomitant]
     Indication: BLOOD CHOLESTEROL ABNORMAL
     Dosage: 1 DF, QD
     Route: 048
  14. ALPHAGAN [Suspect]
     Dosage: 1 DROP EVERY 12 HOURS
  15. OLCADIL [Concomitant]
     Dosage: 2 MG, DAILY
     Route: 048

REACTIONS (20)
  - CEREBROVASCULAR ACCIDENT [None]
  - EYE IRRITATION [None]
  - DRUG HYPERSENSITIVITY [None]
  - BLOOD PRESSURE INCREASED [None]
  - WRONG DRUG ADMINISTERED [None]
  - SPEECH DISORDER [None]
  - EYE OPERATION COMPLICATION [None]
  - EYE MOVEMENT DISORDER [None]
  - FLUID RETENTION [None]
  - INSOMNIA [None]
  - DRUG INEFFECTIVE [None]
  - PHOTOSENSITIVITY REACTION [None]
  - PAIN [None]
  - VISUAL IMPAIRMENT [None]
  - MEMORY IMPAIRMENT [None]
  - INJURY CORNEAL [None]
  - MALAISE [None]
  - EAR DISORDER [None]
  - DIZZINESS [None]
  - DRUG DISPENSING ERROR [None]
